FAERS Safety Report 5623854-X (Version None)
Quarter: 2008Q1

REPORT INFORMATION
  Report Type: 
  Country: None (occurrence: None)
  Receive Date: 20080207
  Receipt Date: 20080117
  Transmission Date: 20080703
  Serious: Yes (Disabling)
  Sender: FDA-Public Use
  Company Number: 2007G1000056

PATIENT
  Age: 63 Year
  Sex: Female
  Weight: 61 kg

DRUGS (5)
  1. NEBIVOLOL HCL [Suspect]
     Indication: HYPERTENSION
     Dosage: 5 MG DAILY ORAL
     Route: 048
     Dates: start: 20061021, end: 20070101
  2. PROPRANOLOL [Suspect]
     Dosage: ORAL
     Route: 048
  3. HYZAAR [Suspect]
     Indication: HYPERTENSION
     Dosage: ORAL
     Route: 048
     Dates: start: 20060701, end: 20070108
  4. PAROXETINE HCL [Concomitant]
  5. ESTRADIOL TRANSDERMAL [Concomitant]

REACTIONS (4)
  - ARTHRALGIA [None]
  - HYPOKINESIA [None]
  - MYALGIA [None]
  - SYSTEMIC LUPUS ERYTHEMATOSUS [None]
